FAERS Safety Report 4694795-X (Version None)
Quarter: 2005Q2

REPORT INFORMATION
  Report Type: 
  Country: None (occurrence: None)
  Receive Date: 20050620
  Receipt Date: 20050606
  Transmission Date: 20051028
  Serious: Yes (Other)
  Sender: FDA-Public Use
  Company Number: 2005AC00883

PATIENT
  Age: 26 Year
  Sex: Female

DRUGS (4)
  1. MEPIVACAINE HCL [Suspect]
     Indication: LYMPHOEDEMA
     Route: 053
  2. MEPIVACAINE HCL [Suspect]
     Indication: PAIN
     Route: 053
  3. BUPRENORPHINE [Concomitant]
  4. PENTAZOCINE LACTATE [Concomitant]

REACTIONS (4)
  - DISCOMFORT [None]
  - DYSPHONIA [None]
  - HEART RATE INCREASED [None]
  - HYPERTENSION [None]
